FAERS Safety Report 8684194 (Version 2)
Quarter: 2013Q1

REPORT INFORMATION
  Report Type: Spontaneous
  Country: US (occurrence: US)
  Receive Date: 20120726
  Receipt Date: 20130111
  Transmission Date: 20140127
  Serious: No
  Sender: FDA-Public Use
  Company Number: US-ASTRAZENECA-2010SE11689

PATIENT
  Age: 48 Year
  Sex: Male

DRUGS (1)
  1. SEROQUEL XR [Suspect]
     Indication: BIPOLAR DISORDER
     Route: 048

REACTIONS (13)
  - Insomnia [Unknown]
  - Malaise [Unknown]
  - Mood altered [Unknown]
  - Impatience [Unknown]
  - Eating disorder [Unknown]
  - Emotional disorder [Unknown]
  - Disorientation [Unknown]
  - Amnesia [Unknown]
  - Drug withdrawal syndrome [Unknown]
  - Tremor [Unknown]
  - Psychomotor hyperactivity [Unknown]
  - Somnolence [Unknown]
  - Drug dose omission [Unknown]
